FAERS Safety Report 18184747 (Version 1)
Quarter: 2020Q3

REPORT INFORMATION
  Report Type: Spontaneous
  Country: TR (occurrence: TR)
  Receive Date: 20200824
  Receipt Date: 20200824
  Transmission Date: 20201103
  Serious: Yes (Other)
  Sender: FDA-Public Use
  Company Number: TR-CELLTRION INC.-2020TR025437

PATIENT

DRUGS (4)
  1. CYCLOSPORINE. [Suspect]
     Active Substance: CYCLOSPORINE
     Indication: FOCAL SEGMENTAL GLOMERULOSCLEROSIS
     Dosage: 5 MG/KG/DAY
  2. RITUXIMAB (UNKNOWN) [Suspect]
     Active Substance: RITUXIMAB
     Dosage: 375 MG/M2, GIVEN AT SIXTH MONTH OF THERAPY
  3. RITUXIMAB (UNKNOWN) [Suspect]
     Active Substance: RITUXIMAB
     Dosage: 375 MG/M2, ONE MONTH AFTER FIRST DOSE
  4. RITUXIMAB (UNKNOWN) [Suspect]
     Active Substance: RITUXIMAB
     Indication: FOCAL SEGMENTAL GLOMERULOSCLEROSIS
     Dosage: 375 MG/M2

REACTIONS (5)
  - Off label use [Unknown]
  - Focal segmental glomerulosclerosis [Recovering/Resolving]
  - Disease recurrence [Recovering/Resolving]
  - Product use issue [Unknown]
  - Drug ineffective for unapproved indication [Unknown]
